FAERS Safety Report 13427555 (Version 1)
Quarter: 2017Q2

REPORT INFORMATION
  Report Type: Spontaneous
  Country: US (occurrence: US)
  Receive Date: 20170411
  Receipt Date: 20170411
  Transmission Date: 20170830
  Serious: No
  Sender: FDA-Public Use
  Company Number: US-LUNDBECK-DKLU2028190

PATIENT
  Sex: Female

DRUGS (1)
  1. NORTHERA [Suspect]
     Active Substance: DROXIDOPA
     Indication: PRODUCT USED FOR UNKNOWN INDICATION
     Route: 065
     Dates: start: 20170304

REACTIONS (7)
  - Blood pressure decreased [Unknown]
  - Headache [Unknown]
  - Arthralgia [Unknown]
  - Nausea [Recovering/Resolving]
  - Feeling abnormal [Unknown]
  - Somnolence [Unknown]
  - Diarrhoea [Unknown]
